FAERS Safety Report 15267849 (Version 1)
Quarter: 2018Q3

REPORT INFORMATION
  Report Type: Spontaneous
  Country: US (occurrence: US)
  Receive Date: 20180724
  Receipt Date: 20180724
  Transmission Date: 20181010
  Serious: Yes (Death)
  Sender: FDA-Public Use
  Company Number: None

PATIENT
  Age: 20 Year
  Sex: Male

DRUGS (1)
  1. ZARXIO [Suspect]
     Active Substance: FILGRASTIM-SNDZ
     Dates: start: 20171229, end: 20180601

REACTIONS (3)
  - Soft tissue sarcoma [None]
  - Product substitution issue [None]
  - Agranulocytosis [None]

NARRATIVE: CASE EVENT DATE: 20180703
